FAERS Safety Report 9240061 (Version 1)
Quarter: 2013Q2

REPORT INFORMATION
  Report Type: Spontaneous
  Country: US (occurrence: None)
  Receive Date: 20130418
  Receipt Date: 20130418
  Transmission Date: 20140414
  Serious: No
  Sender: FDA-Public Use
  Company Number: None

PATIENT
  Age: 55 Year
  Sex: Female
  Weight: 88.2 kg

DRUGS (1)
  1. HUMALOG [Suspect]

REACTIONS (12)
  - Multiple injuries [None]
  - Coma [None]
  - Local swelling [None]
  - Fall [None]
  - Rib fracture [None]
  - Deformity [None]
  - Nausea [None]
  - Vomiting [None]
  - Mass [None]
  - Scar [None]
  - Pain [None]
  - Skin discolouration [None]
